FAERS Safety Report 18375958 (Version 1)
Quarter: 2020Q4

REPORT INFORMATION
  Report Type: Spontaneous
  Country: US (occurrence: US)
  Receive Date: 20201010
  Receipt Date: 20201010
  Transmission Date: 20210114
  Serious: Yes (Other)
  Sender: FDA-Public Use
  Company Number: None

PATIENT
  Age: 52 Year
  Sex: Female
  Weight: 64.35 kg

DRUGS (8)
  1. MONTELUKAST [Suspect]
     Active Substance: MONTELUKAST SODIUM
     Indication: ASTHMA
     Route: 048
     Dates: start: 20200927, end: 20201008
  2. VITAMIN D [Concomitant]
     Active Substance: VITAMIN D NOS
  3. CITALOPRAM [Concomitant]
     Active Substance: CITALOPRAM HYDROBROMIDE
  4. ALLEGRA [Concomitant]
     Active Substance: FEXOFENADINE HYDROCHLORIDE
  5. VENTOLIN [Concomitant]
     Active Substance: ALBUTEROL SULFATE
  6. PREDNISONE. [Concomitant]
     Active Substance: PREDNISONE
  7. ZINC. [Concomitant]
     Active Substance: ZINC
  8. SYMBICORT [Concomitant]
     Active Substance: BUDESONIDE\FORMOTEROL FUMARATE DIHYDRATE

REACTIONS (5)
  - Recalled product administered [None]
  - Restlessness [None]
  - Insomnia [None]
  - Anxiety [None]
  - Tachyphrenia [None]

NARRATIVE: CASE EVENT DATE: 20201008
